FAERS Safety Report 6533665-9 (Version None)
Quarter: 2010Q1

REPORT INFORMATION
  Report Type: 
  Country: None (occurrence: None)
  Receive Date: 20100108
  Receipt Date: 20100108
  Transmission Date: 20100710
  Serious: Yes (Life-Threatening)
  Sender: FDA-Public Use
  Company Number: None

PATIENT
  Sex: Male
  Weight: 69.6271 kg

DRUGS (3)
  1. ELOXATIN [Suspect]
     Indication: COLON CANCER STAGE III
     Dosage: 85MG/M^2 Q 2WKS, IV
     Route: 042
     Dates: start: 20090505, end: 20091008
  2. LORAZEPAM [Concomitant]
  3. PAROXETINE [Concomitant]

REACTIONS (7)
  - ASPIRATION [None]
  - DYSPHAGIA [None]
  - EMPHYSEMA [None]
  - INTERSTITIAL LUNG DISEASE [None]
  - LUNG INFECTION [None]
  - OBLITERATIVE BRONCHIOLITIS [None]
  - ORGANISING PNEUMONIA [None]
